FAERS Safety Report 8429997-X (Version None)
Quarter: 2012Q2

REPORT INFORMATION
  Report Type: 
  Country: None (occurrence: None)
  Receive Date: 20120612
  Receipt Date: 20120604
  Transmission Date: 20120825
  Serious: Yes (Death, Hospitalization, Other)
  Sender: FDA-Public Use
  Company Number: US-BAYER-200940669NA

PATIENT
  Age: 4 Month
  Sex: Male
  Weight: 2.7 kg

DRUGS (25)
  1. TRASYLOL [Suspect]
     Indication: PULMONARY VALVE REPAIR
     Dosage: 10 ML, UNK
     Route: 042
     Dates: start: 20010830, end: 20010830
  2. SODIUM BICARBONATE [Concomitant]
     Dosage: 5 MEQ, UNK
     Route: 042
     Dates: start: 20010830
  3. ALBUMIN (HUMAN) [Concomitant]
     Dosage: 50 ML, UNK
     Route: 042
     Dates: start: 20010830, end: 20010830
  4. SODIUM CHLORIDE [Concomitant]
     Dosage: 40MEQ/8.9 CC/HOUR,
     Route: 042
     Dates: start: 20010825
  5. PROSTAGLANDINS [Concomitant]
     Dosage: 0.1 MCG/KG/MINUTE
     Route: 042
     Dates: start: 20010925
  6. FORANE [Concomitant]
     Dosage: UNK
     Dates: start: 20010830, end: 20010830
  7. RED BLOOD CELLS [Concomitant]
     Dosage: 100 ML, UNK
     Dates: start: 20010830, end: 20010830
  8. CEFAZOLIN [Concomitant]
     Dosage: 70 MG Q8HR
     Route: 042
     Dates: start: 20010830, end: 20010830
  9. CALCIUM GLUCONATE [Concomitant]
     Dosage: 200 MG, UNK
     Route: 042
     Dates: start: 20010830
  10. PAVULON [Concomitant]
     Dosage: 0.8 MG, UNK
     Route: 042
     Dates: start: 20010830, end: 20010830
  11. LASIX [Concomitant]
     Dosage: 3 MG EVERY 12 HOURS; EVERY 8 HOURS, UNK
     Route: 042
     Dates: start: 20010825
  12. KETAMINE HCL [Concomitant]
     Dosage: 6 MG, UNK
     Route: 030
     Dates: start: 20010830, end: 20010830
  13. PROTAMINE SULFATE [Concomitant]
     Dosage: 15, UNK
     Route: 042
     Dates: start: 20010830, end: 20010830
  14. TRASYLOL [Suspect]
     Indication: PATENT DUCTUS ARTERIOSUS REPAIR
     Dosage: 5.4 CC/HOURS, UNK
     Route: 042
     Dates: start: 20010830, end: 20010830
  15. VERSED [Concomitant]
     Dosage: 1 MG, UNK
     Route: 042
     Dates: start: 20010830, end: 20010830
  16. FENTANYL-100 [Concomitant]
     Dosage: 6 MCG, UNK
     Route: 042
  17. SODIUM BICARBONATE [Concomitant]
     Dosage: 3 MEQ, UNK
     Route: 042
     Dates: start: 20010830
  18. SODIUM BICARBONATE [Concomitant]
     Dosage: 1 MEQ, UNK
     Route: 042
     Dates: start: 20010830
  19. CALCIUM CHLORIDE [Concomitant]
     Dosage: 0.50 ML, UNK
     Route: 042
     Dates: start: 20010830, end: 20010830
  20. VERSED [Concomitant]
     Dosage: UNK
     Route: 042
     Dates: start: 20010825
  21. SODIUM BICARBONATE [Concomitant]
     Dosage: 6 ML, UNK
     Route: 042
     Dates: start: 20010830, end: 20010830
  22. MANNITOL [Concomitant]
     Dosage: 3 ML, UNK
     Route: 042
     Dates: start: 20010830, end: 20010830
  23. ACETAMINOPHEN [Concomitant]
     Dosage: 45 MG, UNK
     Route: 042
     Dates: start: 20010826
  24. HEPARIN [Concomitant]
     Dosage: 0.5 ML, UNK
     Route: 042
     Dates: start: 20010830, end: 20010830
  25. FENTANYL-100 [Concomitant]
     Dosage: 100 MG, UNK
     Route: 042
     Dates: start: 20010830, end: 20010830

REACTIONS (12)
  - EMOTIONAL DISTRESS [None]
  - ANHEDONIA [None]
  - ANXIETY [None]
  - RENAL IMPAIRMENT [None]
  - PAIN [None]
  - MULTI-ORGAN FAILURE [None]
  - RENAL INJURY [None]
  - RENAL FAILURE [None]
  - UNEVALUABLE EVENT [None]
  - STRESS [None]
  - FEAR [None]
  - INJURY [None]
